FAERS Safety Report 18270426 (Version 1)
Quarter: 2020Q3

REPORT INFORMATION
  Report Type: Spontaneous
  Country: GB (occurrence: GB)
  Receive Date: 20200915
  Receipt Date: 20200915
  Transmission Date: 20201103
  Serious: Yes (Hospitalization, Other)
  Sender: FDA-Public Use
  Company Number: GB-TEVA-2020-GB-1827334

PATIENT
  Age: 41 Year
  Sex: Male

DRUGS (12)
  1. DEXAMETHASONE. [Suspect]
     Active Substance: DEXAMETHASONE
     Indication: TUBERCULOMA OF CENTRAL NERVOUS SYSTEM
     Dosage: 18 MILLIGRAM DAILY;
     Route: 065
  2. EMTRICITABINE [Concomitant]
     Active Substance: EMTRICITABINE
     Indication: HIV INFECTION
     Route: 065
  3. CAPREOMYCIN [Concomitant]
     Active Substance: CAPREOMYCIN
     Indication: TUBERCULOMA OF CENTRAL NERVOUS SYSTEM
     Route: 065
  4. THALIDOMIDE [Suspect]
     Active Substance: THALIDOMIDE
     Indication: TUBERCULOMA OF CENTRAL NERVOUS SYSTEM
     Route: 065
  5. RIFAMPICIN [Concomitant]
     Active Substance: RIFAMPIN
     Indication: TUBERCULOMA OF CENTRAL NERVOUS SYSTEM
     Route: 065
  6. ETHAMBUTOL [Concomitant]
     Active Substance: ETHAMBUTOL HYDROCHLORIDE
     Indication: TUBERCULOMA OF CENTRAL NERVOUS SYSTEM
     Route: 065
  7. PYRAZINAMIDE. [Concomitant]
     Active Substance: PYRAZINAMIDE
     Indication: TUBERCULOMA OF CENTRAL NERVOUS SYSTEM
     Route: 065
  8. TENOFOVIR [Concomitant]
     Active Substance: TENOFOVIR
     Indication: HIV INFECTION
     Route: 065
  9. CYCLOSERINE. [Concomitant]
     Active Substance: CYCLOSERINE
     Indication: TUBERCULOMA OF CENTRAL NERVOUS SYSTEM
     Route: 065
  10. ISONIAZID. [Concomitant]
     Active Substance: ISONIAZID
     Indication: TUBERCULOMA OF CENTRAL NERVOUS SYSTEM
     Route: 065
  11. EFAVIRENZ. [Concomitant]
     Active Substance: EFAVIRENZ
     Indication: HIV INFECTION
     Route: 065
  12. MOXIFLOXACIN. [Concomitant]
     Active Substance: MOXIFLOXACIN
     Indication: TUBERCULOMA OF CENTRAL NERVOUS SYSTEM
     Route: 065

REACTIONS (6)
  - Inflammation [Recovering/Resolving]
  - Cushingoid [Unknown]
  - Paradoxical drug reaction [Recovering/Resolving]
  - Neuropathy peripheral [Unknown]
  - Tuberculoma of central nervous system [Recovering/Resolving]
  - Depressed mood [Unknown]
